FAERS Safety Report 11097947 (Version 2)
Quarter: 2015Q2

REPORT INFORMATION
  Report Type: Spontaneous
  Country: US (occurrence: US)
  Receive Date: 20150507
  Receipt Date: 20150617
  Transmission Date: 20150821
  Serious: No
  Sender: FDA-Public Use
  Company Number: US-PFIZER INC-2015152211

PATIENT
  Age: 75 Year
  Sex: Female

DRUGS (2)
  1. SERTRALINE HCL [Suspect]
     Active Substance: SERTRALINE HYDROCHLORIDE
     Indication: DEPRESSION
     Dosage: 50 MG, 1X/DAY (STARTED A ? OF 25 MG TAB; THEN 1 OF 25 MG; THEN 2 FOR 50 MG TOTAL DOSE)
     Route: 048
     Dates: start: 201504
  2. SERTRALINE HCL [Suspect]
     Active Substance: SERTRALINE HYDROCHLORIDE
     Indication: BACK PAIN
     Dosage: 25- 50 MG
     Route: 048
     Dates: start: 201504

REACTIONS (5)
  - Pollakiuria [Unknown]
  - Decreased appetite [Unknown]
  - Weight decreased [Recovered/Resolved]
  - Nausea [Recovered/Resolved]
  - Polyuria [Recovered/Resolved]
